FAERS Safety Report 4263797-X (Version None)
Quarter: 2004Q1

REPORT INFORMATION
  Report Type: 
  Country: None (occurrence: None)
  Receive Date: 20040102
  Receipt Date: 20031216
  Transmission Date: 20041129
  Serious: Yes (Hospitalization)
  Sender: FDA-Public Use
  Company Number: USA031254821

PATIENT
  Age: 60 Year
  Sex: Female
  Weight: 80 kg

DRUGS (8)
  1. HUMALOG-HUMAN INSULIN (RDNA): 25% LISPPRO, 75% NPL (LI [Suspect]
     Indication: DIABETES MELLITUS
     Dosage: 80 U/DAY
  2. ASPIRIN [Concomitant]
  3. IMDUR [Concomitant]
  4. TOPROL-XL [Concomitant]
  5. NORVASC [Concomitant]
  6. PRILOSEC [Concomitant]
  7. CAPTOPRIL [Concomitant]
  8. LIPITOR [Concomitant]

REACTIONS (3)
  - CHEST PAIN [None]
  - CORONARY ARTERIAL STENT INSERTION [None]
  - GLAUCOMA [None]
